FAERS Safety Report 8910735 (Version 2)
Quarter: 2013Q1

REPORT INFORMATION
  Report Type: Report from Study
  Country: US (occurrence: US)
  Receive Date: 20121115
  Receipt Date: 20130111
  Transmission Date: 20140127
  Serious: Yes (Other)
  Sender: FDA-Public Use
  Company Number: US-ASTRAZENECA-2012SE84557

PATIENT
  Age: 46 Year
  Sex: Female
  Weight: 59.9 kg

DRUGS (5)
  1. SEROQUEL [Suspect]
     Indication: SCHIZOPHRENIA, PARANOID TYPE
     Dosage: 100 MGS AT 6 AM, 100 MGS AT 4 PM, AND 300 MGS AT NIGHT
     Route: 048
     Dates: start: 2001, end: 2012
  2. SEROQUEL [Suspect]
     Indication: SCHIZOPHRENIA, PARANOID TYPE
     Route: 048
  3. CYMBALTA [Concomitant]
  4. HYDROCOTOZINE ATARAX [Concomitant]
  5. DEPAKOTE [Concomitant]
     Dosage: 500 MG DAILY AND 1000 MG AT NIGHT

REACTIONS (12)
  - Pelvic fracture [Unknown]
  - Brain injury [Unknown]
  - Diabetes mellitus [Unknown]
  - Road traffic accident [Unknown]
  - Injury [Unknown]
  - Musculoskeletal disorder [Unknown]
  - Aggression [Unknown]
  - Pneumonia [Unknown]
  - Somnolence [Unknown]
  - Increased appetite [Unknown]
  - Intentional drug misuse [Unknown]
  - Drug ineffective [Unknown]
